FAERS Safety Report 13840440 (Version 3)
Quarter: 2017Q3

REPORT INFORMATION
  Report Type: Report from Study
  Country: US (occurrence: US)
  Receive Date: 20170807
  Receipt Date: 20170821
  Transmission Date: 20171127
  Serious: No
  Sender: FDA-Public Use
  Company Number: US-AMGEN-USASL2017117287

PATIENT
  Age: 38 Year
  Sex: Female

DRUGS (1)
  1. ENBREL [Suspect]
     Active Substance: ETANERCEPT
     Indication: PSORIASIS
     Dosage: 50 MG, QWK
     Route: 058
     Dates: start: 201707

REACTIONS (7)
  - Musculoskeletal stiffness [Unknown]
  - Intentional product misuse [Unknown]
  - Hypersensitivity [Unknown]
  - Lymphadenopathy [Recovering/Resolving]
  - Gastroenteritis [Unknown]
  - Neck pain [Recovered/Resolved]
  - Throat irritation [Unknown]

NARRATIVE: CASE EVENT DATE: 2017
